FAERS Safety Report 7782325-5 (Version None)
Quarter: 2011Q3

REPORT INFORMATION
  Report Type: 
  Country: None (occurrence: None)
  Receive Date: 20110927
  Receipt Date: 20110914
  Transmission Date: 20111222
  Serious: Yes (Hospitalization)
  Sender: FDA-Public Use
  Company Number: ZA-ELI_LILLY_AND_COMPANY-ZA201109003264

PATIENT
  Sex: Male
  Weight: 15 kg

DRUGS (4)
  1. STRATTERA [Suspect]
     Dosage: 18 MG, QD
     Route: 048
  2. STRATTERA [Suspect]
     Indication: ATTENTION DEFICIT/HYPERACTIVITY DISORDER
     Dosage: 1 DF, UNKNOWN
  3. UNSPECIFIED HERBAL [Concomitant]
  4. STRATTERA [Suspect]
     Dosage: 10 MG, QD

REACTIONS (6)
  - IMPAIRED GASTRIC EMPTYING [None]
  - OFF LABEL USE [None]
  - VOMITING [None]
  - DECREASED APPETITE [None]
  - DEHYDRATION [None]
  - OBSTRUCTION GASTRIC [None]
